FAERS Safety Report 16629253 (Version 3)
Quarter: 2022Q2

REPORT INFORMATION
  Report Type: Spontaneous
  Country: US (occurrence: US)
  Receive Date: 20190725
  Receipt Date: 20220418
  Transmission Date: 20220721
  Serious: No
  Sender: FDA-Public Use
  Company Number: US-PFIZER INC-2019318251

PATIENT
  Age: 82 Year
  Sex: Male
  Weight: 67.13 kg

DRUGS (1)
  1. ATORVASTATIN CALCIUM [Suspect]
     Active Substance: ATORVASTATIN CALCIUM
     Indication: Blood cholesterol abnormal
     Dosage: UNK, 1X/DAY
     Route: 048

REACTIONS (2)
  - Muscle spasms [Unknown]
  - Pain [Unknown]
